FAERS Safety Report 9894564 (Version 2)
Quarter: 2014Q1

REPORT INFORMATION
  Report Type: Spontaneous
  Country: US (occurrence: US)
  Receive Date: 20140213
  Receipt Date: 20140218
  Transmission Date: 20141002
  Serious: Yes (Hospitalization)
  Sender: FDA-Public Use
  Company Number: US-PFIZER INC-2014039370

PATIENT
  Age: 76 Year
  Sex: Female
  Weight: 99.77 kg

DRUGS (7)
  1. LYRICA [Suspect]
     Indication: FIBROMYALGIA
     Dosage: 100 MG, 2X/DAY
     Route: 048
  2. LYRICA [Suspect]
     Dosage: 100 MG, 3X/DAY
     Route: 048
     Dates: start: 2013, end: 2013
  3. AMLODIPINE BESYLATE [Concomitant]
     Indication: HYPERTENSION
     Dosage: 5 MG, 1X/DAY
  4. LEVOTHYROXINE [Concomitant]
     Indication: HYPOTHYROIDISM
     Dosage: 0.075 MG, 1X/DAY
  5. OMEPRAZOLE [Concomitant]
     Indication: GASTROOESOPHAGEAL REFLUX DISEASE
     Dosage: 20 MG, 2X/DAY
  6. TRAMADOL HYDROCHLORIDE [Concomitant]
     Indication: ARTHRITIS
     Dosage: UNK, 2X/DAY (37.5-325 MG)
  7. ZETIA [Concomitant]
     Indication: BLOOD CHOLESTEROL INCREASED
     Dosage: 10 MG, 1X/DAY

REACTIONS (3)
  - Aphagia [Recovered/Resolved]
  - Headache [Recovered/Resolved]
  - Nausea [Recovered/Resolved]
